FAERS Safety Report 7777220-1 (Version None)
Quarter: 2011Q3

REPORT INFORMATION
  Report Type: 
  Country: None (occurrence: None)
  Receive Date: 20110926
  Receipt Date: 20110915
  Transmission Date: 20111222
  Serious: Yes (Life-Threatening, Other)
  Sender: FDA-Public Use
  Company Number: PHHY2011DE83560

PATIENT

DRUGS (3)
  1. PREDNISOLONE [Concomitant]
     Indication: HEART TRANSPLANT
     Dosage: UNK UKN, UNK
  2. MYFORTIC [Suspect]
     Indication: HEART TRANSPLANT
     Dosage: 360 MG, BID
     Route: 048
     Dates: start: 20100601
  3. TACROLIMUS [Concomitant]
     Indication: HEART TRANSPLANT
     Dosage: 1.5 MG/ DAY
     Route: 048
     Dates: start: 20100601

REACTIONS (6)
  - RENAL FAILURE [None]
  - HEPATIC FAILURE [None]
  - CANDIDA SEPSIS [None]
  - URINE OUTPUT DECREASED [None]
  - PERICARDIAL EFFUSION [None]
  - CYTOMEGALOVIRUS INFECTION [None]
